FAERS Safety Report 19745303 (Version 1)
Quarter: 2021Q3

REPORT INFORMATION
  Report Type: Spontaneous
  Country: IN (occurrence: IN)
  Receive Date: 20210825
  Receipt Date: 20210825
  Transmission Date: 20211014
  Serious: Yes (Other)
  Sender: FDA-Public Use
  Company Number: IN-009507513-2108IND005893

PATIENT
  Age: 40 Year
  Sex: Male

DRUGS (4)
  1. AMPHOTERICIN B. [Suspect]
     Active Substance: AMPHOTERICIN B
     Indication: SINUSITIS FUNGAL
     Dosage: 100 MILLIGRAM
     Route: 042
     Dates: start: 2021, end: 202106
  2. POSACONAZOLE [Suspect]
     Active Substance: POSACONAZOLE
     Indication: SINUSITIS FUNGAL
     Dosage: UNK
     Route: 048
     Dates: start: 202106
  3. POSACONAZOLE [Suspect]
     Active Substance: POSACONAZOLE
     Indication: MUCORMYCOSIS
     Dosage: 300 MG, 1?0?0 FOR 7 DAYS
     Route: 048
     Dates: start: 202106
  4. AMPHOTERICIN B. [Suspect]
     Active Substance: AMPHOTERICIN B
     Indication: MUCORMYCOSIS

REACTIONS (10)
  - Haemoglobin abnormal [Unknown]
  - Hypokalaemia [Unknown]
  - Haemoglobin abnormal [Unknown]
  - Alkalosis [Unknown]
  - Blood count abnormal [Recovered/Resolved]
  - Diarrhoea [Unknown]
  - Blood creatine abnormal [Unknown]
  - Blood bicarbonate decreased [Unknown]
  - Sinusitis [Unknown]
  - Blood creatinine increased [Unknown]

NARRATIVE: CASE EVENT DATE: 202106
